FAERS Safety Report 7402874-9 (Version None)
Quarter: 2011Q1

REPORT INFORMATION
  Report Type: 
  Country: None (occurrence: None)
  Receive Date: 20110329
  Receipt Date: 20110316
  Transmission Date: 20110831
  Serious: Yes (Hospitalization, Other)
  Sender: FDA-Public Use
  Company Number: JPI-P-009302

PATIENT
  Age: 54 Year
  Sex: Female
  Weight: 102.0593 kg

DRUGS (17)
  1. FLUTICASONE PROPIONATE [Concomitant]
  2. TOPIRAMATE [Concomitant]
  3. ALBUTEROL SULFATE [Concomitant]
  4. DOXYCYCLINE [Concomitant]
  5. LORATADINE [Concomitant]
  6. PROBIOTIC SUPPLEMENT [Concomitant]
  7. AZELASTINE HCL [Concomitant]
  8. TRAMADOL HCL [Suspect]
     Indication: POST-TRAUMATIC PAIN
     Dates: start: 20100901
  9. LANSOPRAZOLE [Concomitant]
  10. POLYETHYLENE GLYCOL [Concomitant]
  11. MONTELUKAST SODIUM [Concomitant]
  12. XYREM [Suspect]
     Indication: NARCOLEPSY
     Dosage: SEE IMAGE
     Route: 048
     Dates: start: 20090423
  13. XYREM [Suspect]
     Indication: SLEEP APNOEA SYNDROME
     Dosage: SEE IMAGE
     Route: 048
     Dates: start: 20090423
  14. XYREM [Suspect]
     Indication: NARCOLEPSY
     Dosage: SEE IMAGE
     Route: 048
     Dates: start: 20041004
  15. XYREM [Suspect]
     Indication: SLEEP APNOEA SYNDROME
     Dosage: SEE IMAGE
     Route: 048
     Dates: start: 20041004
  16. CLINDAMYCIN [Concomitant]
  17. ACETYLSALICYLIC ACID SRT [Concomitant]

REACTIONS (16)
  - SPINAL OSTEOARTHRITIS [None]
  - INSOMNIA [None]
  - ARTHRITIS [None]
  - SCAR [None]
  - OSTEOARTHRITIS [None]
  - TENDON INJURY [None]
  - VITAMIN D DECREASED [None]
  - NIGHTMARE [None]
  - DRUG INTERACTION [None]
  - ROAD TRAFFIC ACCIDENT [None]
  - GASTRIC PERFORATION [None]
  - DIVERTICULITIS [None]
  - DEPRESSION [None]
  - INTESTINAL OBSTRUCTION [None]
  - COLONIC POLYP [None]
  - MEMORY IMPAIRMENT [None]
